FAERS Safety Report 11294408 (Version 2)
Quarter: 2015Q4

REPORT INFORMATION
  Report Type: Spontaneous
  Country: JP (occurrence: JP)
  Receive Date: 20150722
  Receipt Date: 20151001
  Transmission Date: 20160304
  Serious: Yes (Hospitalization)
  Sender: FDA-Public Use
  Company Number: JP-009507513-1507JPN008509

PATIENT
  Age: 73 Year
  Sex: Female

DRUGS (2)
  1. FOSAMAC TABLETS 35MG [Suspect]
     Active Substance: ALENDRONATE SODIUM
     Indication: OSTEOPOROSIS
     Dosage: TOTAL DOSAGE: 4925 MG, DAILY DOSE UNKNOWN
     Route: 048
     Dates: start: 200203, end: 200504
  2. DIDRONEL [Suspect]
     Active Substance: ETIDRONATE DISODIUM
     Indication: OSTEOPOROSIS
     Dosage: TOTAL DOSAGE: 2800 MG, DAILY DOSE UNKNOWN
     Route: 048
     Dates: start: 200601, end: 200711

REACTIONS (2)
  - Osteomyelitis [Recovered/Resolved]
  - Sinusitis [Recovered/Resolved]

NARRATIVE: CASE EVENT DATE: 200507
